FAERS Safety Report 9202709 (Version 2)
Quarter: 2013Q4

REPORT INFORMATION
  Report Type: Spontaneous
  Country: US (occurrence: US)
  Receive Date: 20130401
  Receipt Date: 20131111
  Transmission Date: 20140711
  Serious: Yes (Life-Threatening, Hospitalization)
  Sender: FDA-Public Use
  Company Number: US-BAYER-2013-039238

PATIENT
  Age: 21 Year
  Sex: Female
  Weight: 145 kg

DRUGS (5)
  1. YASMIN [Suspect]
  2. OCELLA [Suspect]
  3. GIANVI [Suspect]
  4. YAZ [Suspect]
  5. VICODIN [Concomitant]

REACTIONS (7)
  - Cholecystitis [None]
  - Biliary dyskinesia [None]
  - Cholecystectomy [None]
  - Injury [None]
  - Pain [None]
  - Anxiety [None]
  - Anhedonia [None]
